FAERS Safety Report 7537712-7 (Version None)
Quarter: 2011Q2

REPORT INFORMATION
  Report Type: 
  Country: None (occurrence: None)
  Receive Date: 20110609
  Receipt Date: 20071030
  Transmission Date: 20111010
  Serious: Yes (Hospitalization)
  Sender: FDA-Public Use
  Company Number: PHNU2007DE03622

PATIENT
  Sex: Male
  Weight: 79 kg

DRUGS (5)
  1. DIOVAN [Suspect]
     Indication: ESSENTIAL HYPERTENSION
     Dates: start: 20061108, end: 20070801
  2. EXFORGE [Concomitant]
     Indication: ESSENTIAL HYPERTENSION
     Dates: start: 20070101
  3. AMLODIPINE [Concomitant]
     Indication: ESSENTIAL HYPERTENSION
     Dosage: 1 DF, QD
     Route: 047
     Dates: start: 20061108, end: 20070401
  4. METOPROLOL - SLOW RELEASE [Concomitant]
     Indication: ESSENTIAL HYPERTENSION
     Dosage: 0.5 DF PER DAY
     Route: 048
  5. MOLSIDOMINE [Concomitant]

REACTIONS (2)
  - LEFT VENTRICULAR FAILURE [None]
  - THERAPY RESPONDER [None]
